FAERS Safety Report 20336636 (Version 3)
Quarter: 2022Q1

REPORT INFORMATION
  Report Type: Spontaneous
  Country: DE (occurrence: DE)
  Receive Date: 20220114
  Receipt Date: 20220212
  Transmission Date: 20220423
  Serious: Yes (Life-Threatening)
  Sender: FDA-Public Use
  Company Number: DE-002147023-NVSC2022DE005576

PATIENT
  Sex: Female

DRUGS (5)
  1. XOLAIR [Suspect]
     Active Substance: OMALIZUMAB
     Indication: Urticaria
     Route: 065
     Dates: start: 2018
  2. XOLAIR [Suspect]
     Active Substance: OMALIZUMAB
     Dosage: 3 DOSAGE FORM (3 SYRINGES)
     Route: 065
     Dates: start: 20211207
  3. XOLAIR [Suspect]
     Active Substance: OMALIZUMAB
     Dosage: 3 DOSAGE FORM (3 SYRINGES)
     Route: 065
     Dates: start: 20211228
  4. METAMIZOLE [Suspect]
     Active Substance: METAMIZOLE
     Indication: Back pain
     Dosage: UNK
     Route: 065
     Dates: start: 20220102, end: 20220104
  5. LEVOTHYROXINE SODIUM [Concomitant]
     Active Substance: LEVOTHYROXINE SODIUM
     Indication: Product used for unknown indication
     Dosage: UNK, QD (DOSE: 225)
     Route: 065

REACTIONS (22)
  - Urticaria [Recovered/Resolved]
  - Swelling face [Unknown]
  - Swelling [Unknown]
  - Dyspnoea [Unknown]
  - Pruritus [Unknown]
  - Swelling of eyelid [Unknown]
  - Erythema [Unknown]
  - Ocular hyperaemia [Unknown]
  - Headache [Unknown]
  - Eye swelling [Unknown]
  - Sunburn [Unknown]
  - Skin discolouration [Unknown]
  - Back pain [Unknown]
  - General physical health deterioration [Recovering/Resolving]
  - Peripheral swelling [Unknown]
  - Anaesthetic complication [Unknown]
  - Dark circles under eyes [Unknown]
  - Nasopharyngitis [Unknown]
  - Throat irritation [Unknown]
  - Inappropriate schedule of product administration [Unknown]
  - Wrong technique in product usage process [Unknown]
  - Drug ineffective [Unknown]

NARRATIVE: CASE EVENT DATE: 20180101
